FAERS Safety Report 9125127 (Version 2)
Quarter: 2013Q2

REPORT INFORMATION
  Report Type: Spontaneous
  Country: US (occurrence: US)
  Receive Date: 20130121
  Receipt Date: 20130425
  Transmission Date: 20140414
  Serious: Yes (Other)
  Sender: FDA-Public Use
  Company Number: US-AMGEN-USASP2013002797

PATIENT
  Age: 69 Year
  Sex: Male

DRUGS (2)
  1. ENBREL [Suspect]
     Indication: POLYARTHRITIS
     Dosage: UNK
  2. ENBREL [Suspect]
     Indication: PSORIATIC ARTHROPATHY

REACTIONS (3)
  - Atrioventricular block complete [Unknown]
  - Rash maculo-papular [Unknown]
  - Tenderness [Unknown]
